FAERS Safety Report 19645264 (Version 1)
Quarter: 2021Q3

REPORT INFORMATION
  Report Type: Spontaneous
  Country: US (occurrence: US)
  Receive Date: 20210802
  Receipt Date: 20210802
  Transmission Date: 20211014
  Serious: No
  Sender: FDA-Public Use
  Company Number: US-SUN PHARMACEUTICAL INDUSTRIES LTD-2021R1-300440

PATIENT
  Sex: Female

DRUGS (1)
  1. RISEDRONATE [Suspect]
     Active Substance: RISEDRONATE SODIUM
     Indication: PRODUCT USED FOR UNKNOWN INDICATION
     Dosage: UNK, (FIRST DOSE ON MAY 1)
     Route: 065

REACTIONS (5)
  - Arthralgia [Recovering/Resolving]
  - Diarrhoea [Unknown]
  - Pain [Unknown]
  - Back pain [Recovered/Resolved]
  - Gastric disorder [Recovering/Resolving]
